FAERS Safety Report 5123765-2 (Version None)
Quarter: 2006Q3

REPORT INFORMATION
  Report Type: 
  Country: None (occurrence: None)
  Receive Date: 20060811
  Receipt Date: 20060515
  Transmission Date: 20061208
  Serious: Yes (Other)
  Sender: FDA-Public Use
  Company Number: S06-USA-01853-01

PATIENT
  Age: 89 Year
  Sex: Female

DRUGS (10)
  1. NAMENDA [Suspect]
     Indication: DEHYDRATION
     Dosage: 10 MG BID PO
     Route: 048
     Dates: start: 20040101, end: 20060501
  2. NAMENDA [Suspect]
     Indication: DEHYDRATION
     Dosage: 5 MG QD PO
     Route: 048
     Dates: start: 20040101, end: 20040101
  3. NAMENDA [Suspect]
     Indication: DEHYDRATION
     Dosage: 5 MG BID PO
     Route: 048
     Dates: start: 20040101, end: 20040101
  4. NAMENDA [Suspect]
     Indication: DEHYDRATION
     Dosage: 15 MG QD PO
     Route: 048
     Dates: start: 20040101, end: 20040101
  5. MORPHINE [Concomitant]
  6. LORAZEPAM [Concomitant]
  7. ACETAMINOPHEN [Concomitant]
  8. NAPROXEN [Concomitant]
  9. VITAMINS [Concomitant]
  10. STOOL SOFTENER (DOCUSATE SODIUM) [Concomitant]

REACTIONS (1)
  - CONVULSION [None]
